FAERS Safety Report 25514367 (Version 1)
Quarter: 2025Q3

REPORT INFORMATION
  Report Type: Spontaneous
  Country: US (occurrence: US)
  Receive Date: 20250703
  Receipt Date: 20250703
  Transmission Date: 20251021
  Serious: No
  Sender: RADIUS PHARM
  Company Number: US-RADIUS HEALTH INC.-2024US010733

PATIENT
  Age: 64 Year
  Sex: Female

DRUGS (2)
  1. TYMLOS [Suspect]
     Active Substance: ABALOPARATIDE
     Indication: Senile osteoporosis
     Route: 058
     Dates: start: 20241204
  2. METAMUCIL [Concomitant]
     Active Substance: PLANTAGO SEED
     Indication: Constipation

REACTIONS (11)
  - Haemorrhoids [Recovering/Resolving]
  - Therapeutic response unexpected [Unknown]
  - Faeces hard [Recovering/Resolving]
  - Bowel movement irregularity [Recovering/Resolving]
  - Gingival erythema [Unknown]
  - Injection site discomfort [Unknown]
  - Administration site hypersensitivity [Unknown]
  - Injection site pain [Unknown]
  - Injection site erythema [Unknown]
  - Injection site reaction [Not Recovered/Not Resolved]
  - Constipation [Recovering/Resolving]

NARRATIVE: CASE EVENT DATE: 20241204
